FAERS Safety Report 13559859 (Version 1)
Quarter: 2017Q2

REPORT INFORMATION
  Report Type: Spontaneous
  Country: AU (occurrence: AU)
  Receive Date: 20170518
  Receipt Date: 20170518
  Transmission Date: 20170830
  Serious: Yes (Other)
  Sender: FDA-Public Use
  Company Number: AU-PFIZER INC-2017212742

PATIENT
  Age: 63 Year
  Sex: Male

DRUGS (2)
  1. SUNITINIB MALATE. [Suspect]
     Active Substance: SUNITINIB MALATE
     Dosage: 50 MG, DAILY(2/1)
  2. RIVAROXABAN [Concomitant]
     Active Substance: RIVAROXABAN
     Dosage: UNK

REACTIONS (10)
  - Fall [Unknown]
  - Dyspraxia [Unknown]
  - Partial seizures [Recovered/Resolved]
  - Malaise [Unknown]
  - Condition aggravated [Unknown]
  - Facial paralysis [Recovered/Resolved]
  - Neoplasm progression [Unknown]
  - Hemiparesis [Not Recovered/Not Resolved]
  - Hypoaesthesia [Unknown]
  - Aphasia [Recovered/Resolved]
